FAERS Safety Report 16170803 (Version 3)
Quarter: 2019Q2

REPORT INFORMATION
  Report Type: Spontaneous
  Country: CA (occurrence: CA)
  Receive Date: 20190408
  Receipt Date: 20190604
  Transmission Date: 20190711
  Serious: Yes (Other)
  Sender: FDA-Public Use
  Company Number: CA-PFIZER INC-2019065263

PATIENT
  Age: 48 Year
  Sex: Female

DRUGS (13)
  1. BLEXTEN [Suspect]
     Active Substance: BILASTINE
     Indication: CHRONIC SPONTANEOUS URTICARIA
     Dosage: 40 MG, 2X/DAY (1 DOSAGE FORM TWICE DAILY)
     Route: 048
     Dates: start: 20171028, end: 20171130
  2. XOLAIR [Suspect]
     Active Substance: OMALIZUMAB
     Dosage: 450 MG, MONTHLY (EVERY 4 WEEKS)
     Route: 058
     Dates: start: 20180710
  3. ALLEGRA [Concomitant]
     Active Substance: FEXOFENADINE HYDROCHLORIDE
     Indication: CHRONIC SPONTANEOUS URTICARIA
     Dosage: 1 DF, 2X/DAY
     Route: 048
     Dates: start: 20171201
  4. PANTOPRAZOLE [Suspect]
     Active Substance: PANTOPRAZOLE
     Indication: CHRONIC SPONTANEOUS URTICARIA
     Dosage: 1 DF, 1X/DAY
     Route: 048
  5. XOLAIR [Suspect]
     Active Substance: OMALIZUMAB
     Indication: CHRONIC SPONTANEOUS URTICARIA
     Dosage: 300 MG, MONTHLY (EVERY 4 WEEKS)
     Route: 058
     Dates: start: 20180118
  6. XOLAIR [Suspect]
     Active Substance: OMALIZUMAB
     Dosage: 300 MG, UNK
     Route: 058
  7. REACTINE [CETIRIZINE HYDROCHLORIDE] [Concomitant]
     Active Substance: CETIRIZINE HYDROCHLORIDE
     Indication: CHRONIC SPONTANEOUS URTICARIA
     Dosage: 1 DF, 1X/DAY
     Route: 048
     Dates: start: 20170927, end: 20171002
  8. XOLAIR [Suspect]
     Active Substance: OMALIZUMAB
     Dosage: 300 MG, UNK
     Route: 058
     Dates: start: 20180215
  9. SYMBICORT [Concomitant]
     Active Substance: BUDESONIDE\FORMOTEROL FUMARATE DIHYDRATE
     Indication: CHRONIC SPONTANEOUS URTICARIA
     Dosage: 2 DF, 2X/DAY
     Route: 055
     Dates: start: 2013
  10. VENTOLIN [Concomitant]
     Active Substance: ALBUTEROL SULFATE
     Dosage: 2 DF, 4X/DAY
     Route: 055
     Dates: start: 2015
  11. AERIUS (DESLORATADINE) [Concomitant]
     Active Substance: DESLORATADINE
     Indication: CHRONIC SPONTANEOUS URTICARIA
     Dosage: 1 DF, 2X/DAY
     Route: 048
     Dates: start: 20181201
  12. PREDNISONE. [Concomitant]
     Active Substance: PREDNISONE
     Dosage: 1 DF, 1X/DAY
     Route: 048
     Dates: start: 2013
  13. ZANTAC [Concomitant]
     Active Substance: RANITIDINE HYDROCHLORIDE
     Indication: HYPERSENSITIVITY
     Dosage: 1 DF, UNK
     Route: 048
     Dates: start: 2013

REACTIONS (16)
  - Chest discomfort [Unknown]
  - Pruritus [Recovering/Resolving]
  - Headache [Recovered/Resolved]
  - Carcinoid syndrome [Not Recovered/Not Resolved]
  - Nasopharyngitis [Recovering/Resolving]
  - Sinus headache [Unknown]
  - Erythema [Unknown]
  - Throat irritation [Recovering/Resolving]
  - Dyspnoea [Unknown]
  - Hypersomnia [Unknown]
  - Nasal pruritus [Unknown]
  - Bone pain [Unknown]
  - Flushing [Unknown]
  - Hypertension [Not Recovered/Not Resolved]
  - Epistaxis [Recovered/Resolved]
  - Urticaria [Not Recovered/Not Resolved]

NARRATIVE: CASE EVENT DATE: 20180118
